FAERS Safety Report 5492744-8 (Version None)
Quarter: 2007Q4

REPORT INFORMATION
  Report Type: 
  Country: None (occurrence: None)
  Receive Date: 20071023
  Receipt Date: 20071018
  Transmission Date: 20080405
  Serious: Yes (Death)
  Sender: FDA-Public Use
  Company Number: PHHO2007MX17243

PATIENT
  Age: 80 Year
  Sex: Male

DRUGS (1)
  1. DIOVAN HCT [Suspect]
     Indication: HYPERTENSION
     Dosage: 160/25 MG DAILY
     Route: 048
     Dates: start: 20070101

REACTIONS (3)
  - DIABETES MELLITUS [None]
  - HYPERTENSION [None]
  - RENAL FAILURE [None]
